FAERS Safety Report 6870001-2 (Version None)
Quarter: 2010Q3

REPORT INFORMATION
  Report Type: 
  Country: None (occurrence: None)
  Receive Date: 20100722
  Receipt Date: 20081206
  Transmission Date: 20110219
  Serious: No
  Sender: FDA-Public Use
  Company Number: US-PFIZER INC-2008065715

PATIENT
  Sex: Female
  Weight: 45.454 kg

DRUGS (1)
  1. CHANTIX [Suspect]
     Dosage: 1 MG, 2X/DAY
     Dates: start: 20080701

REACTIONS (3)
  - DYSGEUSIA [None]
  - FEELING ABNORMAL [None]
  - MALAISE [None]
